FAERS Safety Report 6646920-9 (Version None)
Quarter: 2010Q1

REPORT INFORMATION
  Report Type: 
  Country: None (occurrence: None)
  Receive Date: 20100323
  Receipt Date: 20100318
  Transmission Date: 20100710
  Serious: Yes (Death)
  Sender: FDA-Public Use
  Company Number: US-GILEAD-2010-0027950

PATIENT
  Sex: Female
  Weight: 49.032 kg

DRUGS (13)
  1. LETAIRIS [Suspect]
     Indication: PULMONARY ARTERIAL HYPERTENSION
     Route: 048
     Dates: start: 20070817, end: 20100315
  2. VENTAVIS [Concomitant]
  3. NORVASC [Concomitant]
  4. TOPROLOL [Concomitant]
  5. SENSIPAR [Concomitant]
  6. DIGOXIN [Concomitant]
  7. EPOGEN [Concomitant]
  8. AMBIEN [Concomitant]
  9. MOTRIN [Concomitant]
  10. NEXIUM [Concomitant]
  11. RENAGEL [Concomitant]
  12. PHOSLO [Concomitant]
  13. ZOLOFT [Concomitant]

REACTIONS (1)
  - DEATH [None]
